FAERS Safety Report 21313128 (Version 1)
Quarter: 2022Q3

REPORT INFORMATION
  Report Type: Spontaneous
  Country: FR (occurrence: FR)
  Receive Date: 20220909
  Receipt Date: 20220909
  Transmission Date: 20221027
  Serious: Yes (Other)
  Sender: FDA-Public Use
  Company Number: None

PATIENT
  Age: 79 Year
  Sex: Female

DRUGS (5)
  1. METHOTREXATE [Suspect]
     Active Substance: METHOTREXATE
     Indication: Psoriasis
     Dosage: 1 TIME PER WEEK
     Dates: start: 20201208, end: 202112
  2. HUMIRA [Suspect]
     Active Substance: ADALIMUMAB
     Indication: Psoriasis
     Dosage: IN PRE-FILLED SYRINGE 40 MG, 1 / WEEK
     Dates: start: 202004, end: 202012
  3. ELIQUIS [Concomitant]
     Active Substance: APIXABAN
     Dates: start: 2017
  4. FLECAINIDE [Concomitant]
     Active Substance: FLECAINIDE
     Dates: start: 2005
  5. DOLIPRANE [Concomitant]
     Active Substance: ACETAMINOPHEN
     Dates: start: 2020

REACTIONS (1)
  - Basal cell carcinoma [Recovered/Resolved]

NARRATIVE: CASE EVENT DATE: 20220208
